FAERS Safety Report 8524556-2 (Version None)
Quarter: 2012Q3

REPORT INFORMATION
  Report Type: 
  Country: None (occurrence: None)
  Receive Date: 20120720
  Receipt Date: 20120619
  Transmission Date: 20120928
  Serious: Yes (Other)
  Sender: FDA-Public Use
  Company Number: BR-ROCHE-1089045

PATIENT
  Age: 27 Year
  Sex: Female

DRUGS (13)
  1. MABTHERA [Suspect]
     Indication: MULTIPLE SCLEROSIS
  2. METHYLPREDNISOLONE [Concomitant]
     Indication: NEUROMYELITIS OPTICA
  3. THALIDOMIDE [Concomitant]
  4. BETASERON [Concomitant]
  5. CLADRIBINE [Concomitant]
  6. METHYLPREDNISOLONE [Concomitant]
     Indication: SYSTEMIC LUPUS ERYTHEMATOSUS
  7. CYCLOPHOSPHAMIDE [Concomitant]
  8. POLYGAM S/D [Concomitant]
  9. FLUDARABINE PHOSPHATE [Concomitant]
  10. MABTHERA [Suspect]
     Indication: SYSTEMIC LUPUS ERYTHEMATOSUS
     Dates: start: 20090101
  11. MABTHERA [Suspect]
     Indication: NEUROMYELITIS OPTICA
     Dates: start: 20070101
  12. CYCLOSPORINE [Concomitant]
  13. METHYLPREDNISOLONE [Concomitant]
     Indication: MULTIPLE SCLEROSIS

REACTIONS (2)
  - SENSORIMOTOR DISORDER [None]
  - B-LYMPHOCYTE COUNT INCREASED [None]
